FAERS Safety Report 9455873 (Version 1)
Quarter: 2013Q3

REPORT INFORMATION
  Report Type: Report from Study
  Country: CA (occurrence: CA)
  Receive Date: 20130813
  Receipt Date: 20130813
  Transmission Date: 20140515
  Serious: Yes (Other)
  Sender: FDA-Public Use
  Company Number: CA-ROCHE-1137570

PATIENT
  Age: 65 Year
  Sex: Male

DRUGS (6)
  1. VEMURAFENIB [Suspect]
     Indication: METASTATIC MALIGNANT MELANOMA
     Route: 048
     Dates: start: 201209
  2. VEMURAFENIB [Suspect]
     Route: 048
  3. CRESTOR [Concomitant]
     Route: 065
  4. AGGRENOX [Concomitant]
     Dosage: 200/25 MG
     Route: 065
  5. RAMIPRIL [Concomitant]
     Route: 065
  6. TYLENOL #3 (CANADA) [Concomitant]
     Indication: MYALGIA
     Route: 065

REACTIONS (5)
  - Blood pressure fluctuation [Not Recovered/Not Resolved]
  - Gout [Unknown]
  - Burning sensation [Not Recovered/Not Resolved]
  - Hypoacusis [Not Recovered/Not Resolved]
  - Toxicity to various agents [Unknown]
